FAERS Safety Report 5538454-X (Version None)
Quarter: 2007Q4

REPORT INFORMATION
  Report Type: 
  Country: None (occurrence: None)
  Receive Date: 20071205
  Receipt Date: 20071120
  Transmission Date: 20080405
  Serious: Yes (Other)
  Sender: FDA-Public Use
  Company Number: 2007US002898

PATIENT
  Age: 59 Year
  Sex: Male

DRUGS (1)
  1. AMEVIVE [Suspect]
     Indication: PSORIASIS
     Dosage: 15MG, WEEKLY; INTRAMUSCULAR
     Route: 030
     Dates: start: 20040101

REACTIONS (1)
  - MELANOCYTIC NAEVUS [None]
